FAERS Safety Report 12856497 (Version 1)
Quarter: 2016Q4

REPORT INFORMATION
  Report Type: Spontaneous
  Country: SE (occurrence: SE)
  Receive Date: 20161018
  Receipt Date: 20161018
  Transmission Date: 20170207
  Serious: Yes (Other)
  Sender: FDA-Public Use
  Company Number: SE-AUROBINDO-AUR-APL-2016-13058

PATIENT
  Age: 84 Year
  Sex: Female

DRUGS (1)
  1. MIRTAZAPINE ORODISPERSABLE TABLET [Suspect]
     Active Substance: MIRTAZAPINE
     Indication: PRODUCT USED FOR UNKNOWN INDICATION
     Dosage: 15 MG, UNK
     Route: 065

REACTIONS (4)
  - Hallucination [Recovered/Resolved]
  - Dysarthria [Recovered/Resolved]
  - Formication [Recovered/Resolved]
  - Nightmare [Recovered/Resolved]
